FAERS Safety Report 17382223 (Version 2)
Quarter: 2020Q1

REPORT INFORMATION
  Report Type: Report from Study
  Country: IT (occurrence: IT)
  Receive Date: 20200206
  Receipt Date: 20200331
  Transmission Date: 20200409
  Serious: Yes (Other)
  Sender: FDA-Public Use
  Company Number: IT-PFIZER INC-2020047026

PATIENT
  Age: 66 Year
  Sex: Female

DRUGS (6)
  1. MEDROL [Suspect]
     Active Substance: METHYLPREDNISOLONE
     Indication: FIBROMYALGIA
     Dosage: 1 DF, 1X/DAY
     Route: 048
  2. LASIX [Concomitant]
     Active Substance: FUROSEMIDE
     Indication: HYPERTENSION
     Dosage: UNK
  3. SAMYR [ADEMETIONINE DISULFATE DITOSYLATE] [Concomitant]
     Indication: DEPRESSION
     Dosage: UNK
  4. ACETYLSALICYLIC ACID [Concomitant]
     Active Substance: ASPIRIN
     Indication: THROMBOSIS PROPHYLAXIS
     Dosage: UNK
  5. EZEQUA [Concomitant]
     Active Substance: DULOXETINE HYDROCHLORIDE
     Indication: DEPRESSION
     Dosage: UNK
  6. DIBASE [Concomitant]
     Active Substance: CHOLECALCIFEROL
     Indication: HYPOVITAMINOSIS
     Dosage: UNK

REACTIONS (6)
  - Off label use [Unknown]
  - Abdominal pain [Recovering/Resolving]
  - Nausea [Recovering/Resolving]
  - Secondary adrenocortical insufficiency [Recovering/Resolving]
  - Vomiting [Recovering/Resolving]
  - Product use in unapproved indication [Unknown]

NARRATIVE: CASE EVENT DATE: 20191125
